FAERS Safety Report 9314553 (Version 1)
Quarter: 2013Q2

REPORT INFORMATION
  Report Type: Spontaneous
  Country: BR (occurrence: BR)
  Receive Date: 20130529
  Receipt Date: 20130529
  Transmission Date: 20140414
  Serious: Yes (Other)
  Sender: FDA-Public Use
  Company Number: BR-AMGEN-BRASP2013037697

PATIENT
  Age: 40 Year
  Sex: Female
  Weight: 71.47 kg

DRUGS (3)
  1. ENBREL [Suspect]
     Indication: RHEUMATOID ARTHRITIS
     Dosage: 50 MG, ONCE WEEKLY
     Dates: start: 2010, end: 2012
  2. ENBREL [Suspect]
     Dosage: UNK
     Dates: start: 2012
  3. REUQUINOL [Concomitant]
     Indication: RHEUMATOID ARTHRITIS
     Dosage: 1 TABLET OF 400MG STRENGTH, ONCE A DAY

REACTIONS (11)
  - Cholelithiasis [Unknown]
  - Arrhythmia [Unknown]
  - Goitre [Unknown]
  - Cardiac disorder [Unknown]
  - Foot fracture [Unknown]
  - Gait disturbance [Unknown]
  - Fall [Unknown]
  - Osteoporosis [Unknown]
  - Lung disorder [Unknown]
  - Fatigue [Unknown]
  - Injection site pain [Unknown]
